FAERS Safety Report 8398641-2 (Version None)
Quarter: 2012Q2

REPORT INFORMATION
  Report Type: 
  Country: None (occurrence: None)
  Receive Date: 20120531
  Receipt Date: 20120529
  Transmission Date: 20120825
  Serious: No
  Sender: FDA-Public Use
  Company Number: US-TEVA-340332USA

PATIENT
  Sex: Female
  Weight: 69.008 kg

DRUGS (5)
  1. NUVARING [Suspect]
     Indication: CONTRACEPTION
     Route: 067
  2. PROZAC [Concomitant]
     Indication: DEPRESSION
  3. EFFEXOR [Concomitant]
     Indication: ANXIETY
  4. PROPRANOLOL [Concomitant]
     Indication: MIGRAINE
  5. PLAN B ONE-STEP [Suspect]
     Indication: POST COITAL CONTRACEPTION
     Dosage: 1.5 MILLIGRAM;
     Route: 048
     Dates: start: 20120415, end: 20120415

REACTIONS (2)
  - MENSTRUATION IRREGULAR [None]
  - PREGNANCY [None]
